FAERS Safety Report 8861620 (Version 1)
Quarter: 2012Q4

REPORT INFORMATION
  Report Type: 
  Country: US (occurrence: US)
  Receive Date: 20121025
  Receipt Date: 20121025
  Transmission Date: 20130627
  Serious: No
  Sender: FDA-Public Use
  Company Number: US-AMGEN-USASP2012018375

PATIENT
  Age: 58 Year
  Sex: Female
  Weight: 64.85 kg

DRUGS (9)
  1. ENBREL [Suspect]
     Indication: PRODUCT USED FOR UNKNOWN INDICATION
     Dosage: 50 mg, qwk
  2. MAGNESIUM [Concomitant]
     Dosage: 30 mg, UNK
  3. TOLECTIN [Concomitant]
     Dosage: 600 mg, UNK
  4. LISINOPRIL + HIDROCLOROTIAZIDA [Concomitant]
  5. TOPROL [Concomitant]
     Dosage: 100 mg, UNK
  6. FOLIC ACID [Concomitant]
     Dosage: 1 mg, UNK
  7. METHOTREXATE [Concomitant]
     Dosage: 2.5 mg, UNK
  8. ADVAIR [Concomitant]
  9. COMBIVENT [Concomitant]

REACTIONS (1)
  - Sinusitis [Unknown]
